FAERS Safety Report 10717933 (Version 1)
Quarter: 2015Q1

REPORT INFORMATION
  Report Type: Report from Study
  Country: IT (occurrence: IT)
  Receive Date: 20150116
  Receipt Date: 20150116
  Transmission Date: 20150721
  Serious: Yes (Death, Hospitalization, Other)
  Sender: FDA-Public Use
  Company Number: IT-ABBVIE-14P-083-1215207-00

PATIENT
  Age: 78 Year
  Sex: Female
  Weight: 55 kg

DRUGS (11)
  1. LANSOX [Concomitant]
     Active Substance: LANSOPRAZOLE
     Dosage: 1 CAPSULE AT 8AM
  2. MOVICOL [Concomitant]
     Active Substance: POLYETHYLENE GLYCOL 3350\POTASSIUM CHLORIDE\SODIUM BICARBONATE\SODIUM CHLORIDE
     Indication: CONSTIPATION
     Route: 048
  3. HYDROCHLOROTHIAZIDE\VALSARTAN [Concomitant]
     Active Substance: HYDROCHLOROTHIAZIDE\VALSARTAN
     Indication: PRODUCT USED FOR UNKNOWN INDICATION
     Dosage: 1 TABLET AT 8AM
     Route: 048
  4. FOLINA [Concomitant]
     Active Substance: FOLIC ACID
     Indication: PRODUCT USED FOR UNKNOWN INDICATION
     Dosage: 1 TABLET AT 8AM
     Route: 048
  5. TACHIPIRINA [Concomitant]
     Active Substance: ACETAMINOPHEN
     Indication: ANALGESIC THERAPY
     Dosage: 1 TABLET AS NEEDED
     Route: 048
  6. NATECAL [Concomitant]
     Active Substance: CALCIUM CARBONATE\CHOLECALCIFEROL
     Indication: PRODUCT USED FOR UNKNOWN INDICATION
     Dosage: 1 TABLET AT 8PM
     Route: 048
  7. LANSOX [Concomitant]
     Active Substance: LANSOPRAZOLE
     Indication: PRODUCT USED FOR UNKNOWN INDICATION
     Dosage: 1 CAPSULE AT 08:00 A.M.
     Route: 048
  8. SINEMET LP [Concomitant]
     Active Substance: CARBIDOPA\LEVODOPA
     Indication: PRODUCT USED FOR UNKNOWN INDICATION
     Dosage: 1 TABLET AT 10PM
     Route: 048
  9. DUODOPA [Suspect]
     Active Substance: CARBIDOPA\LEVODOPA
     Indication: PARKINSON^S DISEASE
     Dosage: MD 4.6 MLCI 2.5 ML/HED 1.5 ML:, FROM 8AM TO 8PM
     Route: 050
     Dates: start: 20140311, end: 20140314
  10. CARDIOASPIRIN [Concomitant]
     Active Substance: ASPIRIN
     Indication: THROMBOSIS PROPHYLAXIS
     Dosage: 1 TABLET AFTER LUNCH
     Route: 048
  11. CARDIOASPIRIN 100 [Concomitant]
     Indication: PRODUCT USED FOR UNKNOWN INDICATION
     Dosage: 1 TABLET AFTER LUNCH
     Route: 048

REACTIONS (13)
  - Hypotension [Unknown]
  - Respiratory failure [Fatal]
  - Abdominal pain [Fatal]
  - Dyskinesia [Fatal]
  - Hyperpyrexia [Fatal]
  - Intestinal perforation [Fatal]
  - Pneumoperitoneum [Unknown]
  - Chemical peritonitis [Unknown]
  - Condition aggravated [Fatal]
  - Anuria [Unknown]
  - Acute kidney injury [Fatal]
  - Shock [Fatal]
  - Ascites [Unknown]

NARRATIVE: CASE EVENT DATE: 201403
